FAERS Safety Report 23486277 (Version 1)
Quarter: 2024Q1

REPORT INFORMATION
  Report Type: Spontaneous
  Country: FR (occurrence: FR)
  Receive Date: 20240206
  Receipt Date: 20240206
  Transmission Date: 20240410
  Serious: Yes (Other)
  Sender: FDA-Public Use
  Company Number: None

PATIENT
  Age: 52 Year
  Sex: Male
  Weight: 87 kg

DRUGS (8)
  1. LEVETIRACETAM [Suspect]
     Active Substance: LEVETIRACETAM
     Indication: Epilepsy
     Dates: end: 20230426
  2. AMOXICILLIN [Suspect]
     Active Substance: AMOXICILLIN
     Indication: Infection
  3. CLAVULANIC ACID [Suspect]
     Active Substance: CLAVULANIC ACID
     Indication: Infection
  4. ALEPSAL [Concomitant]
     Dosage: 50 MG
  5. LOVENOX [Concomitant]
     Active Substance: ENOXAPARIN SODIUM
     Dosage: 4,000 IU ANTI-XA/0.4 ML, SOLUTION FOR INJECTION IN CARTRIDGE
  6. FENOFIBRATE [Concomitant]
     Active Substance: FENOFIBRATE
  7. TOPIRAMATE [Concomitant]
     Active Substance: TOPIRAMATE
  8. TEGRETOL [Concomitant]
     Active Substance: CARBAMAZEPINE
     Dosage: L.P. 400 MG, SCORED FILM-COATED TABLET WITH PROLONGED RELEASE

REACTIONS (1)
  - Toxic skin eruption [Recovered/Resolved]
